FAERS Safety Report 8209721-6 (Version None)
Quarter: 2012Q1

REPORT INFORMATION
  Report Type: 
  Country: None (occurrence: None)
  Receive Date: 20120314
  Receipt Date: 20120229
  Transmission Date: 20120608
  Serious: Yes (Death, Hospitalization)
  Sender: FDA-Public Use
  Company Number: JP-TEVA-2011003863

PATIENT
  Sex: Male

DRUGS (8)
  1. TREANDA [Suspect]
     Indication: EXTRANODAL MARGINAL ZONE B-CELL LYMPHOMA (MALT TYPE)
     Route: 042
     Dates: start: 20110523, end: 20110524
  2. DORIPENEM [Concomitant]
     Indication: ENTEROCOLITIS
     Dosage: .5 GRAM;
     Dates: start: 20110515, end: 20110528
  3. GRANISETRON HCL [Concomitant]
     Indication: ANTIEMETIC SUPPORTIVE CARE
     Dosage: 3 MILLIGRAM;
     Dates: start: 20110523, end: 20110524
  4. PANTHENOL [Concomitant]
     Indication: GASTROINTESTINAL MOTILITY DISORDER
     Dosage: 100 MILLIGRAM;
     Dates: start: 20110515, end: 20110605
  5. TREANDA [Suspect]
     Route: 042
     Dates: start: 20110601, end: 20110601
  6. FUROSEMIDE [Concomitant]
     Indication: OEDEMA
     Dosage: 10 MILLIGRAM;
     Dates: start: 20110515, end: 20110528
  7. FURSULTIAMINE HYDROCHLORIDE [Concomitant]
     Indication: GASTROINTESTINAL MOTILITY DISORDER
     Dosage: 50 MILLIGRAM;
     Dates: start: 20110515, end: 20110605
  8. METOCLOPRAMIDE HCL [Concomitant]
     Indication: VOMITING
     Dosage: 10 MILLIGRAM;
     Dates: start: 20110523, end: 20110527

REACTIONS (2)
  - EXTRANODAL MARGINAL ZONE B-CELL LYMPHOMA (MALT TYPE) [None]
  - HERPES ZOSTER [None]
